FAERS Safety Report 12753165 (Version 1)
Quarter: 2016Q3

REPORT INFORMATION
  Report Type: Spontaneous
  Country: GB (occurrence: GB)
  Receive Date: 20160916
  Receipt Date: 20160916
  Transmission Date: 20161109
  Serious: Yes (Hospitalization, Other)
  Sender: FDA-Public Use
  Company Number: GB-ACCORD-043916

PATIENT
  Age: 19 Year
  Sex: Male

DRUGS (11)
  1. VALPROIC ACID. [Concomitant]
     Active Substance: VALPROIC ACID
     Dates: end: 20160808
  2. THIAMINE. [Concomitant]
     Active Substance: THIAMINE
  3. LEVOTHYROXINE/LEVOTHYROXINE SODIUM [Concomitant]
  4. PROPOFOL. [Concomitant]
     Active Substance: PROPOFOL
     Dates: start: 20160807, end: 20160809
  5. CEFTRIAXONE/CEFTRIAXONE SODIUM [Concomitant]
     Dates: start: 20160805, end: 20160810
  6. LEVETIRACETAM. [Suspect]
     Active Substance: LEVETIRACETAM
     Indication: EPILEPSY
     Route: 042
     Dates: start: 20160810, end: 20160813
  7. CLONIDINE. [Concomitant]
     Active Substance: CLONIDINE
  8. ENOXAPARIN/ENOXAPARIN SODIUM [Concomitant]
  9. TOPIRAMATE. [Concomitant]
     Active Substance: TOPIRAMATE
  10. ALFENTANIL/ALFENTANIL HYDROCHLORIDE [Concomitant]
     Dates: start: 20160811
  11. RANITIDINE. [Concomitant]
     Active Substance: RANITIDINE

REACTIONS (2)
  - Blood creatine phosphokinase increased [Recovering/Resolving]
  - Seizure [Not Recovered/Not Resolved]

NARRATIVE: CASE EVENT DATE: 20160813
